FAERS Safety Report 19690013 (Version 1)
Quarter: 2021Q3

REPORT INFORMATION
  Report Type: Spontaneous
  Country: US (occurrence: US)
  Receive Date: 20210811
  Receipt Date: 20210811
  Transmission Date: 20211014
  Serious: No
  Sender: FDA-Public Use
  Company Number: None

PATIENT
  Age: 80 Year
  Sex: Male
  Weight: 70.2 kg

DRUGS (1)
  1. INBRIJA [Suspect]
     Active Substance: LEVODOPA
     Indication: PARKINSONISM
     Dosage: ?          OTHER ROUTE:ORAL INHALATION?
     Route: 048
     Dates: start: 20190501

REACTIONS (1)
  - Emphysema [None]

NARRATIVE: CASE EVENT DATE: 20210125
